FAERS Safety Report 9742901 (Version 2)
Quarter: 2013Q4

REPORT INFORMATION
  Report Type: Spontaneous
  Country: DE (occurrence: DE)
  Receive Date: 20131210
  Receipt Date: 20131210
  Transmission Date: 20140711
  Serious: Yes (Other)
  Sender: FDA-Public Use
  Company Number: DE-ELI_LILLY_AND_COMPANY-DE201311002025

PATIENT
  Age: 50 Year
  Sex: Female
  Weight: 83 kg

DRUGS (11)
  1. ZYPREXA [Suspect]
     Indication: DEPRESSION
     Dosage: 5 MG, UNKNOWN
     Route: 048
     Dates: start: 20130626, end: 20130626
  2. ZYPREXA [Suspect]
     Dosage: 10 MG, UNKNOWN
     Route: 048
     Dates: start: 20130627, end: 20130703
  3. RISPERDAL [Suspect]
     Indication: PRODUCT USED FOR UNKNOWN INDICATION
     Dosage: 2 MG, UNKNOWN
     Route: 065
     Dates: start: 20130701, end: 20130703
  4. RISPERDAL [Suspect]
     Dosage: 1 MG, UNKNOWN
     Route: 065
     Dates: start: 20130704, end: 20130707
  5. TREVILOR [Suspect]
     Indication: PRODUCT USED FOR UNKNOWN INDICATION
     Dosage: 75 MG, UNKNOWN
     Route: 065
     Dates: start: 20130628, end: 20130718
  6. TREVILOR [Suspect]
     Dosage: 112.5 MG, UNKNOWN
     Route: 065
     Dates: start: 20130719
  7. TAVOR [Concomitant]
     Indication: PRODUCT USED FOR UNKNOWN INDICATION
     Dosage: 1.5 MG, UNKNOWN
     Route: 065
     Dates: start: 20130627, end: 20130721
  8. TAVOR [Concomitant]
     Dosage: 1 MG, UNKNOWN
     Route: 065
     Dates: start: 20130722, end: 20130723
  9. TAVOR [Concomitant]
     Dosage: 0.5 MG, UNKNOWN
     Route: 065
     Dates: start: 20130724, end: 20130728
  10. ZOPICLONE [Concomitant]
     Indication: PRODUCT USED FOR UNKNOWN INDICATION
     Dosage: 7.5 MG, UNKNOWN
     Route: 048
     Dates: start: 20130627, end: 20130704
  11. PANTOZAL [Concomitant]
     Indication: PRODUCT USED FOR UNKNOWN INDICATION
     Dosage: 40 MG, UNKNOWN
     Route: 065
     Dates: start: 20130629

REACTIONS (6)
  - Galactorrhoea [Recovered/Resolved]
  - Breast tenderness [Recovered/Resolved]
  - Blood glucose increased [Not Recovered/Not Resolved]
  - C-reactive protein increased [Not Recovered/Not Resolved]
  - White blood cell count increased [Not Recovered/Not Resolved]
  - Platelet count increased [Not Recovered/Not Resolved]
